FAERS Safety Report 18843933 (Version 1)
Quarter: 2021Q1

REPORT INFORMATION
  Report Type: Spontaneous
  Country: US (occurrence: US)
  Receive Date: 20210204
  Receipt Date: 20210204
  Transmission Date: 20210419
  Serious: No
  Sender: FDA-Public Use
  Company Number: None

PATIENT
  Age: 47 Year
  Sex: Male
  Weight: 118.35 kg

DRUGS (6)
  1. FINASTERIDE. [Suspect]
     Active Substance: FINASTERIDE
     Indication: ANDROGENETIC ALOPECIA
     Dosage: ?          QUANTITY:1 TABLET(S);?
     Route: 048
     Dates: start: 20171201, end: 20201201
  2. FENOFIBRATE. [Concomitant]
     Active Substance: FENOFIBRATE
  3. ESCITALOPRAM [Concomitant]
     Active Substance: ESCITALOPRAM OXALATE
  4. BABY ASPIRIN [Concomitant]
     Active Substance: ASPIRIN
  5. ATORVASTIN [Concomitant]
     Active Substance: ATORVASTATIN
  6. EZETIMIBE. [Concomitant]
     Active Substance: EZETIMIBE

REACTIONS (3)
  - Suicidal ideation [None]
  - Depression [None]
  - Androgenetic alopecia [None]

NARRATIVE: CASE EVENT DATE: 20200101
